FAERS Safety Report 4509202-7 (Version None)
Quarter: 2004Q4

REPORT INFORMATION
  Report Type: 
  Country: None (occurrence: None)
  Receive Date: 20041123
  Receipt Date: 20041117
  Transmission Date: 20050328
  Serious: Yes (Life-Threatening, Hospitalization, Other)
  Sender: FDA-Public Use
  Company Number: GB-MERCK-0411GBR00164

PATIENT
  Age: 75 Year
  Sex: Female

DRUGS (6)
  1. ZOCOR [Suspect]
     Indication: BLOOD CHOLESTEROL INCREASED
     Route: 065
     Dates: end: 20041027
  2. ZOCOR [Suspect]
     Route: 065
     Dates: start: 20041027, end: 20041028
  3. VERAPAMIL [Suspect]
     Indication: HYPERTENSION
     Route: 048
     Dates: start: 20040913, end: 20041027
  4. VERAPAMIL [Suspect]
     Indication: PALPITATIONS
     Route: 048
     Dates: start: 20040913, end: 20041027
  5. PRINIVIL [Concomitant]
     Indication: HYPERTENSION
     Route: 065
  6. ISOSORBIDE MONONITRATE [Concomitant]
     Route: 048

REACTIONS (3)
  - ALANINE AMINOTRANSFERASE INCREASED [None]
  - MYOSITIS [None]
  - RHABDOMYOLYSIS [None]
